FAERS Safety Report 7461206-0 (Version None)
Quarter: 2011Q2

REPORT INFORMATION
  Report Type: 
  Country: None (occurrence: None)
  Receive Date: 20110505
  Receipt Date: 20110426
  Transmission Date: 20111010
  Serious: Yes (Hospitalization)
  Sender: FDA-Public Use
  Company Number: US-ASTRAZENECA-2011SE18612

PATIENT
  Age: 31 Year
  Sex: Female

DRUGS (1)
  1. NEXIUM [Suspect]
     Route: 048

REACTIONS (6)
  - APHASIA [None]
  - DYSGRAPHIA [None]
  - MALAISE [None]
  - DRUG DOSE OMISSION [None]
  - VOMITING [None]
  - IMPAIRED WORK ABILITY [None]
